FAERS Safety Report 10442759 (Version 1)
Quarter: 2014Q3

REPORT INFORMATION
  Report Type: Spontaneous
  Country: FR (occurrence: None)
  Receive Date: 20140908
  Receipt Date: 20140908
  Transmission Date: 20150326
  Serious: Yes (Hospitalization, Other)
  Sender: FDA-Public Use
  Company Number: ADR-2014-01616

PATIENT
  Age: 46 Year
  Sex: Male

DRUGS (2)
  1. BACLOFEN ORAL [Suspect]
     Active Substance: BACLOFEN
     Indication: MUSCLE SPASTICITY
     Dates: start: 20140710, end: 20140717
  2. DUPHALAC [Concomitant]
     Active Substance: LACTULOSE

REACTIONS (3)
  - Hepatic encephalopathy [None]
  - Ammonia increased [None]
  - Partial seizures [None]

NARRATIVE: CASE EVENT DATE: 20140716
